FAERS Safety Report 17967898 (Version 1)
Quarter: 2020Q3

REPORT INFORMATION
  Report Type: Spontaneous
  Country: IL (occurrence: IL)
  Receive Date: 20200701
  Receipt Date: 20200701
  Transmission Date: 20201103
  Serious: Yes (Death, Life-Threatening, Hospitalization)
  Sender: FDA-Public Use
  Company Number: IL-ARROWPHARMA-2016SP008641

PATIENT
  Age: 69 Year
  Sex: Male

DRUGS (8)
  1. PIPERACILLIN AND TAZOBACTAM [Suspect]
     Active Substance: PIPERACILLIN SODIUM\TAZOBACTAM SODIUM
     Indication: SEPSIS
     Dosage: UNK
     Route: 042
  2. CIPROFLOXACIN. [Suspect]
     Active Substance: CIPROFLOXACIN
     Indication: STAPHYLOCOCCAL INFECTION
     Dosage: UNK
     Route: 065
  3. CIPROFLOXACIN. [Suspect]
     Active Substance: CIPROFLOXACIN
     Indication: MENINGITIS
     Dosage: UNK
     Route: 065
  4. VANCOMYCIN [Suspect]
     Active Substance: VANCOMYCIN
     Indication: STAPHYLOCOCCAL INFECTION
     Dosage: UNK
     Route: 065
  5. DOXYCYCLINE. [Suspect]
     Active Substance: DOXYCYCLINE
     Indication: STAPHYLOCOCCAL INFECTION
     Dosage: UNK
     Route: 065
  6. LINEZOLID. [Suspect]
     Active Substance: LINEZOLID
     Indication: STAPHYLOCOCCAL INFECTION
     Dosage: UNK
     Route: 065
  7. VANCOMYCIN [Suspect]
     Active Substance: VANCOMYCIN
     Indication: SEPSIS
     Dosage: UNK
     Route: 042
  8. CEFTAROLINE [Suspect]
     Active Substance: CEFTAROLINE
     Indication: MENINGITIS
     Dosage: UNK
     Route: 065

REACTIONS (21)
  - Septic shock [Fatal]
  - Myocarditis [Unknown]
  - Mental status changes [Unknown]
  - Foreign body reaction [Unknown]
  - Acute kidney injury [Fatal]
  - Blister [Unknown]
  - Drug reaction with eosinophilia and systemic symptoms [Fatal]
  - Stevens-Johnson syndrome [Fatal]
  - Therapeutic product cross-reactivity [Unknown]
  - Thyroiditis [Unknown]
  - Rash erythematous [Unknown]
  - Toxic epidermal necrolysis [Fatal]
  - Skin exfoliation [Unknown]
  - Staphylococcal bacteraemia [Fatal]
  - Tubulointerstitial nephritis [Fatal]
  - Tachycardia [Unknown]
  - Cardiac failure [Unknown]
  - Hepatitis acute [Unknown]
  - Mucosal erosion [Unknown]
  - Nikolsky^s sign [Unknown]
  - Dermatitis [Unknown]
